FAERS Safety Report 11014029 (Version 2)
Quarter: 2015Q2

REPORT INFORMATION
  Report Type: Spontaneous
  Country: US (occurrence: US)
  Receive Date: 20150412
  Receipt Date: 20150525
  Transmission Date: 20150821
  Serious: No
  Sender: FDA-Public Use
  Company Number: US-JNJFOC-20140717262

PATIENT
  Sex: Female
  Weight: 62.14 kg

DRUGS (2)
  1. ELMIRON [Suspect]
     Active Substance: PENTOSAN POLYSULFATE SODIUM
     Indication: CYSTITIS INTERSTITIAL
     Route: 048
  2. SIMVASTATIN. [Suspect]
     Active Substance: SIMVASTATIN
     Indication: PRODUCT USED FOR UNKNOWN INDICATION
     Route: 065
     Dates: end: 2014

REACTIONS (10)
  - Dystonia [Not Recovered/Not Resolved]
  - Sinus disorder [Unknown]
  - Gastric disorder [Unknown]
  - Anxiety [Unknown]
  - Dyspepsia [Unknown]
  - Abdominal distension [Unknown]
  - Bladder disorder [Unknown]
  - Muscle spasms [Not Recovered/Not Resolved]
  - Alopecia [Unknown]
  - Drug dose omission [Unknown]
